FAERS Safety Report 7093751-4 (Version None)
Quarter: 2010Q4

REPORT INFORMATION
  Report Type: 
  Country: None (occurrence: None)
  Receive Date: 20101110
  Receipt Date: 20101105
  Transmission Date: 20110411
  Serious: Yes (Other)
  Sender: FDA-Public Use
  Company Number: US-BAYER-201040130NA

PATIENT
  Sex: Female

DRUGS (2)
  1. YASMIN [Suspect]
     Dates: start: 20060101, end: 20070101
  2. OCELLA [Suspect]
     Dates: start: 20090101, end: 20090101

REACTIONS (5)
  - ABDOMINAL PAIN UPPER [None]
  - BACK PAIN [None]
  - CHOLECYSTECTOMY [None]
  - DIARRHOEA [None]
  - IRRITABLE BOWEL SYNDROME [None]
